FAERS Safety Report 6588944-6 (Version None)
Quarter: 2010Q1

REPORT INFORMATION
  Report Type: 
  Country: None (occurrence: None)
  Receive Date: 20100218
  Receipt Date: 20100209
  Transmission Date: 20100710
  Serious: Yes (Other)
  Sender: FDA-Public Use
  Company Number: ZA-PFIZER INC-2010016538

PATIENT
  Sex: Female

DRUGS (2)
  1. ZYVOXID [Suspect]
     Indication: SEPSIS
     Dosage: UNK
     Route: 042
  2. ZYVOXID [Suspect]
     Dosage: 600 MG, 2X/DAY
     Route: 048
     Dates: start: 20100208

REACTIONS (1)
  - GOUT [None]
